FAERS Safety Report 12103969 (Version 1)
Quarter: 2016Q1

REPORT INFORMATION
  Report Type: Spontaneous
  Country: US (occurrence: US)
  Receive Date: 20160223
  Receipt Date: 20160223
  Transmission Date: 20160526
  Serious: No
  Sender: FDA-Public Use
  Company Number: US-TEVA-625444USA

PATIENT
  Sex: Female

DRUGS (1)
  1. BUSPIRONE [Suspect]
     Active Substance: BUSPIRONE HYDROCHLORIDE
     Dates: start: 20151217

REACTIONS (2)
  - Abdominal discomfort [Unknown]
  - Product odour abnormal [Unknown]
